FAERS Safety Report 6636392-2 (Version None)
Quarter: 2010Q1

REPORT INFORMATION
  Report Type: 
  Country: None (occurrence: None)
  Receive Date: 20100316
  Receipt Date: 20100310
  Transmission Date: 20100710
  Serious: Yes (Death, Other)
  Sender: FDA-Public Use
  Company Number: TR-ELI_LILLY_AND_COMPANY-TR201003003668

PATIENT
  Sex: Female

DRUGS (2)
  1. HUMULIN R [Suspect]
     Indication: DIABETES MELLITUS
     Dosage: UNK UNK, 2/D
     Route: 058
  2. ATARAX [Concomitant]
     Indication: CARDIAC DISORDER
     Dosage: UNK, DAILY (1/D)
     Route: 065
     Dates: end: 20091102

REACTIONS (3)
  - DEATH [None]
  - DIARRHOEA [None]
  - NAUSEA [None]
